FAERS Safety Report 5789090-1 (Version None)
Quarter: 2008Q2

REPORT INFORMATION
  Report Type: 
  Country: None (occurrence: None)
  Receive Date: 20080626
  Receipt Date: 20071121
  Transmission Date: 20081010
  Serious: No
  Sender: FDA-Public Use
  Company Number: US-ASTRAZENECA-2007UW26912

PATIENT
  Age: 63 Year
  Sex: Female

DRUGS (3)
  1. PULMICORT FLEXHALER [Suspect]
     Indication: ASTHMA
     Route: 055
  2. SYNTHROID [Concomitant]
  3. FLONASE [Concomitant]

REACTIONS (1)
  - DRUG INEFFECTIVE [None]
